FAERS Safety Report 7945961-9 (Version None)
Quarter: 2011Q4

REPORT INFORMATION
  Report Type: 
  Country: None (occurrence: None)
  Receive Date: 20111129
  Receipt Date: 20111123
  Transmission Date: 20120403
  Serious: Yes (Other)
  Sender: FDA-Public Use
  Company Number: AU-SANOFI-AVENTIS-2011SA077676

PATIENT
  Age: 9 Year
  Sex: Male

DRUGS (12)
  1. ACYCLOVIR [Suspect]
  2. ONDANSETRON [Suspect]
  3. BUSULFAN [Suspect]
  4. FLUDARABINE PHOSPHATE [Suspect]
  5. CASPOFUNGIN ACETATE [Suspect]
  6. URSODIOL [Suspect]
  7. MEROPENEM [Suspect]
  8. METOCLOPRAMIDE [Suspect]
  9. VALACICLOVIR [Suspect]
  10. MYCOPHENOLATE MOFETIL [Suspect]
  11. ENOXAPARIN SODIUM [Suspect]
  12. PROGRAF [Suspect]

REACTIONS (4)
  - MALAISE [None]
  - PANCREATITIS ACUTE [None]
  - NAUSEA [None]
  - ABDOMINAL PAIN [None]
